FAERS Safety Report 6102160-3 (Version None)
Quarter: 2009Q1

REPORT INFORMATION
  Report Type: 
  Country: None (occurrence: None)
  Receive Date: 20090303
  Receipt Date: 20090303
  Transmission Date: 20090719
  Serious: Yes (Other)
  Sender: FDA-Public Use
  Company Number: None

PATIENT
  Age: 65 Year
  Sex: Female
  Weight: 56.6996 kg

DRUGS (1)
  1. LEVAQUIN [Suspect]
     Indication: BRONCHITIS
     Dosage: 7 TABLETS ONCE DAILY PO
     Route: 048
     Dates: start: 20090113

REACTIONS (5)
  - AGEUSIA [None]
  - ANOSMIA [None]
  - ASTHENIA [None]
  - DYSGEUSIA [None]
  - HYPOAESTHESIA [None]
